FAERS Safety Report 19222776 (Version 1)
Quarter: 2021Q2

REPORT INFORMATION
  Report Type: Spontaneous
  Country: US (occurrence: US)
  Receive Date: 20210506
  Receipt Date: 20210506
  Transmission Date: 20210717
  Serious: No
  Sender: FDA-Public Use
  Company Number: NVSC2021US082868

PATIENT
  Sex: Female

DRUGS (2)
  1. OLOPATADINE. [Suspect]
     Active Substance: OLOPATADINE
     Indication: HYPERSENSITIVITY
     Dosage: UNK
     Route: 065
  2. OLOPATADINE. [Suspect]
     Active Substance: OLOPATADINE
     Indication: EYE PRURITUS

REACTIONS (4)
  - Drug ineffective [Recovered/Resolved]
  - Vision blurred [Recovered/Resolved]
  - Ocular hyperaemia [Recovered/Resolved]
  - Product use in unapproved indication [Recovered/Resolved]
